FAERS Safety Report 14498294 (Version 4)
Quarter: 2018Q1

REPORT INFORMATION
  Report Type: Spontaneous
  Country: JP (occurrence: JP)
  Receive Date: 20180207
  Receipt Date: 20180319
  Transmission Date: 20180509
  Serious: Yes (Hospitalization)
  Sender: FDA-Public Use
  Company Number: JP-PFIZER INC-2018053540

PATIENT
  Age: 42 Year
  Sex: Male

DRUGS (4)
  1. REBAMIPIDE [Suspect]
     Active Substance: REBAMIPIDE
     Dosage: 1 DF, 3X/DAY
     Route: 048
     Dates: start: 20171120, end: 20171123
  2. LOXONIN [Suspect]
     Active Substance: LOXOPROFEN SODIUM
     Dosage: 60 MG, 3X/DAY
     Route: 048
     Dates: start: 20171120, end: 20171121
  3. CALONAL [Suspect]
     Active Substance: ACETAMINOPHEN
     Dosage: 400 MG, AS NEEDED
     Route: 048
     Dates: start: 20171120
  4. BANAN [Suspect]
     Active Substance: CEFPODOXIME PROXETIL
     Indication: TONSILLITIS
     Dosage: 100 MG, 2X/DAY
     Route: 048
     Dates: start: 20171120, end: 20171123

REACTIONS (1)
  - Hepatic function abnormal [Recovering/Resolving]
